FAERS Safety Report 14276749 (Version 1)
Quarter: 2017Q4

REPORT INFORMATION
  Report Type: Spontaneous
  Country: US (occurrence: US)
  Receive Date: 20171212
  Receipt Date: 20171212
  Transmission Date: 20180321
  Serious: No
  Sender: FDA-Public Use
  Company Number: US-TEVA-800019ACC

PATIENT
  Sex: Female

DRUGS (1)
  1. LANSOPRAZOLE. [Suspect]
     Active Substance: LANSOPRAZOLE
     Dosage: DELAYED-RELEASE CAPSULES

REACTIONS (6)
  - Oral candidiasis [Recovered/Resolved]
  - Abdominal distension [Recovered/Resolved]
  - Gastric pH decreased [Recovered/Resolved]
  - Drug ineffective [Unknown]
  - Lactose intolerance [Recovered/Resolved]
  - Flatulence [Recovered/Resolved]
